FAERS Safety Report 8948101 (Version 1)
Quarter: 2012Q4

REPORT INFORMATION
  Report Type: 
  Country: FR (occurrence: FR)
  Receive Date: 20121204
  Receipt Date: 20121204
  Transmission Date: 20130627
  Serious: Yes (Hospitalization)
  Sender: FDA-Public Use
  Company Number: FR-GLAXOSMITHKLINE-B0847204A

PATIENT
  Age: 64 Year
  Sex: Female

DRUGS (7)
  1. ZOPHREN [Suspect]
     Indication: NAUSEA
     Dosage: 8MG Three times per day
     Route: 048
     Dates: start: 20120821
  2. HALAVEN [Suspect]
     Indication: BREAST CANCER
     Route: 042
     Dates: start: 20120712, end: 20120809
  3. CAELYX [Suspect]
     Indication: BREAST CANCER
     Route: 042
     Dates: start: 20110505, end: 201201
  4. COUMADINE [Suspect]
     Indication: PRODUCT USED FOR UNKNOWN INDICATION
     Dosage: 4MG Per day
     Route: 048
     Dates: start: 20120813
  5. CARDENSIEL [Suspect]
     Indication: DYSPNOEA
     Dosage: 2.5MG Per day
     Route: 048
     Dates: start: 201206
  6. TRACLEER [Suspect]
     Indication: PULMONARY ARTERIAL HYPERTENSION
     Dosage: 125MG Twice per day
     Route: 048
     Dates: start: 201206
  7. PRIMPERAN [Suspect]
     Indication: NAUSEA
     Route: 048
     Dates: start: 20120821

REACTIONS (4)
  - Cardiogenic shock [Recovering/Resolving]
  - Right ventricular failure [Recovering/Resolving]
  - Ventricular dysfunction [Recovering/Resolving]
  - Renal failure acute [Recovering/Resolving]
